FAERS Safety Report 11575368 (Version 1)
Quarter: 2015Q3

REPORT INFORMATION
  Report Type: Spontaneous
  Country: US (occurrence: None)
  Receive Date: 20150929
  Receipt Date: 20150929
  Transmission Date: 20151125
  Serious: Yes (Hospitalization)
  Sender: FDA-Public Use
  Company Number: None

PATIENT
  Age: 34 Year
  Sex: Female
  Weight: 66.23 kg

DRUGS (3)
  1. CLINDAMYCIN 300MG [Suspect]
     Active Substance: CLINDAMYCIN PHOSPHATE
     Indication: INFECTION
     Route: 048
     Dates: start: 20150820, end: 20150827
  2. CLINDAMYCIN 300MG [Suspect]
     Active Substance: CLINDAMYCIN PHOSPHATE
     Indication: TOOTH EXTRACTION
     Route: 048
     Dates: start: 20150820, end: 20150827
  3. FLAGYL [Concomitant]
     Active Substance: METRONIDAZOLE\METRONIDAZOLE HYDROCHLORIDE

REACTIONS (12)
  - Fatigue [None]
  - Eating disorder [None]
  - Abdominal pain upper [None]
  - Arthralgia [None]
  - Vomiting [None]
  - Gastritis [None]
  - Diarrhoea [None]
  - Pyrexia [None]
  - Chills [None]
  - Weight decreased [None]
  - Chest discomfort [None]
  - Clostridium test positive [None]

NARRATIVE: CASE EVENT DATE: 20150902
